FAERS Safety Report 4451389-9 (Version None)
Quarter: 2004Q3

REPORT INFORMATION
  Report Type: 
  Country: None (occurrence: None)
  Receive Date: 20040915
  Receipt Date: 20040901
  Transmission Date: 20050211
  Serious: Yes (Hospitalization, Other)
  Sender: FDA-Public Use
  Company Number: 2004063357

PATIENT
  Age: 32 Year
  Sex: Female

DRUGS (1)
  1. ZITHROMAX [Suspect]
     Indication: CYSTIC FIBROSIS
     Dosage: 500 MG (500 MG, 1 IN 1 D), ORAL
     Route: 048
     Dates: start: 20030101, end: 20040901

REACTIONS (3)
  - ALANINE AMINOTRANSFERASE INCREASED [None]
  - ASPARTATE AMINOTRANSFERASE INCREASED [None]
  - GASTROINTESTINAL DISORDER [None]
